FAERS Safety Report 7653798-3 (Version None)
Quarter: 2011Q3

REPORT INFORMATION
  Report Type: 
  Country: None (occurrence: None)
  Receive Date: 20110803
  Receipt Date: 20110727
  Transmission Date: 20111222
  Serious: Yes (Hospitalization)
  Sender: FDA-Public Use
  Company Number: CH-GLAXOSMITHKLINE-B0736743A

PATIENT
  Age: 83 Year
  Sex: Female

DRUGS (7)
  1. VOLTAREN [Suspect]
     Indication: PRODUCT USED FOR UNKNOWN INDICATION
     Route: 048
     Dates: end: 20110530
  2. XANAX [Concomitant]
  3. OMEPRAZOLE [Concomitant]
  4. ENALAPRIL MALEATE [Concomitant]
  5. METFFORMIN HYDROCHLORIDE [Concomitant]
  6. PAROXETINE HCL [Suspect]
     Indication: PRODUCT USED FOR UNKNOWN INDICATION
     Dosage: 20MG PER DAY
     Route: 048
     Dates: end: 20110530
  7. ACETAMINOPHEN [Concomitant]
     Indication: ANALGESIC THERAPY

REACTIONS (4)
  - IRON DEFICIENCY ANAEMIA [None]
  - PROCTITIS [None]
  - RECTAL HAEMORRHAGE [None]
  - HAEMATOCHEZIA [None]
